FAERS Safety Report 4966642-X (Version None)
Quarter: 2006Q2

REPORT INFORMATION
  Report Type: 
  Country: None (occurrence: None)
  Receive Date: 20060407
  Receipt Date: 20060331
  Transmission Date: 20061013
  Serious: Yes (Death)
  Sender: FDA-Public Use
  Company Number: CA-AVENTIS-200613166US

PATIENT

DRUGS (4)
  1. GLYBURIDE [Suspect]
     Indication: DIABETES MELLITUS NON-INSULIN-DEPENDENT
     Dosage: DOSE: NOT PROVIDED
  2. CHLORPROPAMIDE [Suspect]
     Dosage: DOSE: NOT PROVIDED
  3. TOLBUTAMIDE [Suspect]
  4. CONCOMITANT MEDICATION NOS [Concomitant]

REACTIONS (3)
  - CARDIOVASCULAR DISORDER [None]
  - DEATH [None]
  - MYOCARDIAL INFARCTION [None]
